FAERS Safety Report 14376669 (Version 1)
Quarter: 2018Q1

REPORT INFORMATION
  Report Type: Spontaneous
  Country: US (occurrence: US)
  Receive Date: 20180111
  Receipt Date: 20180111
  Transmission Date: 20180509
  Serious: Yes (Other)
  Sender: FDA-Public Use
  Company Number: US-BAYER-2018-004066

PATIENT

DRUGS (1)
  1. AFRIN ORIGINAL [Suspect]
     Active Substance: OXYMETAZOLINE HYDROCHLORIDE
     Indication: SINUS DISORDER
     Dosage: UNK

REACTIONS (3)
  - Drug dependence [Unknown]
  - Incorrect drug administration duration [Unknown]
  - Sinus disorder [Unknown]
